FAERS Safety Report 19941989 (Version 1)
Quarter: 2021Q4

REPORT INFORMATION
  Report Type: Spontaneous
  Country: JP (occurrence: JP)
  Receive Date: 20211012
  Receipt Date: 20211012
  Transmission Date: 20220303
  Serious: Yes (Other)
  Sender: FDA-Public Use
  Company Number: JP-TEVA TAKEDA YAKUHIN-2021-JP-004922J

PATIENT
  Age: 87 Year
  Sex: Male

DRUGS (5)
  1. ASPIRIN\LANSOPRAZOLE [Suspect]
     Active Substance: ASPIRIN\LANSOPRAZOLE
     Indication: Thrombosis prophylaxis
     Dosage: 1 DOSAGE FORM = 100MG ASPIRIN + 15MG LANSOPRAZOLE
     Route: 048
     Dates: start: 20150403, end: 20210728
  2. NORVASC [Concomitant]
     Active Substance: AMLODIPINE BESYLATE
     Dosage: DOSAGE IS UNKNOWN
     Route: 065
  3. MICARDIS [Concomitant]
     Active Substance: TELMISARTAN
     Dosage: DOSAGE IS UNKNOWN
     Route: 065
  4. CRESTOR [Concomitant]
     Active Substance: ROSUVASTATIN CALCIUM
     Dosage: DOSAGE IS UNKNOWN
     Route: 065
  5. ISOSORBIDE DINITRATE [Concomitant]
     Active Substance: ISOSORBIDE DINITRATE
     Dosage: DOSAGE IS UNKNOWN
     Route: 065

REACTIONS (3)
  - Internal haemorrhage [Recovering/Resolving]
  - Bleeding time prolonged [Recovering/Resolving]
  - Product use in unapproved indication [Unknown]
